FAERS Safety Report 8808992 (Version 2)
Quarter: 2013Q1

REPORT INFORMATION
  Report Type: Spontaneous
  Country: JP (occurrence: None)
  Receive Date: 20120920
  Receipt Date: 20121015
  Transmission Date: 20140127
  Serious: Yes (Hospitalization)
  Sender: FDA-Public Use
  Company Number: AE-SPE-2012-009

PATIENT
  Age: 2 Year
  Sex: Male

DRUGS (7)
  1. MEIACT [Suspect]
     Indication: UPPER RESPIRATORY TRACT INFLAMMATION
     Route: 048
     Dates: start: 20120625, end: 20120701
  2. FAROM (FAROPENEM SODIUM HYDRATE) [Suspect]
     Indication: PRODUCT USED FOR UNKNOWN INDICATION
     Route: 048
     Dates: start: 20120702, end: 20120703
  3. ANTIBIOTICS-RESISTANT LACTIC ACID BACTERIAE [Concomitant]
  4. AMBROXOL HYDROCHLORIDE [Concomitant]
  5. TIPEPIDINE HIBENZATE [Concomitant]
  6. L-CARBOCISTEINE [Concomitant]
  7. DIAZEPAM [Concomitant]

REACTIONS (5)
  - Stevens-Johnson syndrome [None]
  - Pyrexia [None]
  - Vomiting [None]
  - Aspartate aminotransferase increased [None]
  - Alanine aminotransferase increased [None]
